FAERS Safety Report 24547890 (Version 3)
Quarter: 2025Q3

REPORT INFORMATION
  Report Type: Spontaneous
  Country: CN (occurrence: CN)
  Receive Date: 20241025
  Receipt Date: 20250818
  Transmission Date: 20251020
  Serious: Yes (Hospitalization, Other)
  Sender: ASTELLAS
  Company Number: CN-ASTELLAS-2024-AER-013054

PATIENT
  Age: 55 Year
  Sex: Female
  Weight: 66.5 kg

DRUGS (11)
  1. TACROLIMUS [Interacting]
     Active Substance: TACROLIMUS
     Indication: Dermatomyositis
     Route: 065
     Dates: start: 202203, end: 20220328
  2. TACROLIMUS [Interacting]
     Active Substance: TACROLIMUS
     Indication: Interstitial lung disease
     Route: 065
     Dates: start: 20220328, end: 20220401
  3. TACROLIMUS [Interacting]
     Active Substance: TACROLIMUS
     Dosage: 06-APR
     Route: 065
     Dates: start: 20220406, end: 20220411
  4. TACROLIMUS [Interacting]
     Active Substance: TACROLIMUS
     Dosage: 0.5 MG IN THE MORNING AND 1 MG AT NIGHT
     Route: 065
     Dates: start: 20220411
  5. PANTOPRAZOLE [Interacting]
     Active Substance: PANTOPRAZOLE
     Indication: Product used for unknown indication
     Route: 065
     Dates: start: 20220401
  6. OMEPRAZOLE [Interacting]
     Active Substance: OMEPRAZOLE
     Indication: Product used for unknown indication
     Route: 065
     Dates: end: 20220401
  7. PHENOBARBITAL [Interacting]
     Active Substance: PHENOBARBITAL
     Indication: Toxicity to various agents
     Route: 065
     Dates: start: 20220401, end: 20220403
  8. METHYLPREDNISOLONE [Concomitant]
     Active Substance: METHYLPREDNISOLONE
     Indication: Dermatomyositis
     Route: 065
     Dates: start: 202203, end: 20220328
  9. METHYLPREDNISOLONE [Concomitant]
     Active Substance: METHYLPREDNISOLONE
     Indication: Interstitial lung disease
     Route: 065
     Dates: start: 20220328, end: 20220405
  10. METHYLPREDNISOLONE [Concomitant]
     Active Substance: METHYLPREDNISOLONE
     Route: 065
     Dates: start: 20220405
  11. ACARBOSE [Concomitant]
     Active Substance: ACARBOSE
     Indication: Type 2 diabetes mellitus
     Route: 065

REACTIONS (11)
  - Hypertension [Recovered/Resolved]
  - Diarrhoea [Recovered/Resolved]
  - Arthralgia [Recovered/Resolved]
  - Asthenia [Recovering/Resolving]
  - Toxicity to various agents [Recovered/Resolved]
  - Blood lactic acid increased [Unknown]
  - Dizziness [Unknown]
  - Off label use [Unknown]
  - Drug interaction [Unknown]
  - Drug interaction [Unknown]
  - Drug interaction [Unknown]

NARRATIVE: CASE EVENT DATE: 20220301
